FAERS Safety Report 21251576 (Version 2)
Quarter: 2022Q3

REPORT INFORMATION
  Report Type: Spontaneous
  Country: IT (occurrence: IT)
  Receive Date: 20220825
  Receipt Date: 20220909
  Transmission Date: 20221027
  Serious: Yes (Hospitalization, Other)
  Sender: FDA-Public Use
  Company Number: IT-NOVOPROD-948928

PATIENT
  Sex: Female
  Weight: 70 kg

DRUGS (2)
  1. SAXENDA [Suspect]
     Active Substance: LIRAGLUTIDE
     Indication: Obesity
     Dosage: 0.6 MG
     Dates: start: 20220720, end: 20220728
  2. SERTRALINE [Concomitant]
     Active Substance: SERTRALINE HYDROCHLORIDE
     Indication: Product used for unknown indication
     Dosage: 100 MG, BID

REACTIONS (6)
  - Fall [Recovered/Resolved with Sequelae]
  - Ankle fracture [Not Recovered/Not Resolved]
  - Decreased appetite [Recovered/Resolved with Sequelae]
  - Nausea [Recovered/Resolved with Sequelae]
  - Vomiting [Recovered/Resolved with Sequelae]
  - Fatigue [Recovered/Resolved with Sequelae]

NARRATIVE: CASE EVENT DATE: 20220720
